FAERS Safety Report 12068255 (Version 1)
Quarter: 2016Q1

REPORT INFORMATION
  Report Type: Spontaneous
  Country: US (occurrence: US)
  Receive Date: 20160211
  Receipt Date: 20160211
  Transmission Date: 20160526
  Serious: No
  Sender: FDA-Public Use
  Company Number: US-SMITH AND NEPHEW, INC-2015SMT00485

PATIENT
  Age: 58 Year
  Sex: Male
  Weight: 76.64 kg

DRUGS (10)
  1. SINGULAIR [Concomitant]
     Active Substance: MONTELUKAST SODIUM
  2. CALCIUM [Concomitant]
     Active Substance: CALCIUM
  3. METFORMIN [Concomitant]
     Active Substance: METFORMIN HYDROCHLORIDE
     Dosage: 500 MG, 1X/DAY
  4. ALBUTEROL INHALER [Concomitant]
     Active Substance: ALBUTEROL
  5. REGRANEX [Suspect]
     Active Substance: BECAPLERMIN
     Indication: WOUND
     Dosage: UNK, 1X/DAY
     Route: 061
     Dates: start: 2015, end: 20151022
  6. REGRANEX [Suspect]
     Active Substance: BECAPLERMIN
     Dosage: UNK, 1X/DAY
     Route: 061
     Dates: start: 20151024
  7. CENTRUM MULTIVITAMIN [Concomitant]
  8. VITAMIN C [Concomitant]
     Active Substance: ASCORBIC ACID
  9. CRANBERRY PILL(S) [Concomitant]
     Dosage: 1200 MG, 2X/DAY
  10. UNSPECIFIED STOOL SOFTNER [Concomitant]
     Dosage: UNK, 2X/DAY

REACTIONS (5)
  - Application site infection [Unknown]
  - Feeling hot [Recovered/Resolved]
  - Skin disorder [Unknown]
  - Post procedural haemorrhage [Recovered/Resolved]
  - Application site exfoliation [Unknown]

NARRATIVE: CASE EVENT DATE: 2015
